FAERS Safety Report 21689061 (Version 1)
Quarter: 2022Q4

REPORT INFORMATION
  Report Type: Report from Study
  Country: CA (occurrence: CA)
  Receive Date: 20221206
  Receipt Date: 20221206
  Transmission Date: 20230113
  Serious: Yes (Hospitalization)
  Sender: FDA-Public Use
  Company Number: CA-ABBVIE-4224707

PATIENT
  Age: 27 Year
  Sex: Male

DRUGS (1)
  1. SKYRIZI [Suspect]
     Active Substance: RISANKIZUMAB-RZAA
     Indication: Psoriasis
     Route: 058
     Dates: start: 20220722

REACTIONS (8)
  - Fungal cystitis [Recovered/Resolved]
  - Night sweats [Recovering/Resolving]
  - Chromaturia [Recovering/Resolving]
  - Throat irritation [Recovering/Resolving]
  - Blood creatine phosphokinase increased [Recovering/Resolving]
  - Illness [Recovering/Resolving]
  - Influenza [Recovering/Resolving]
  - Pharyngeal inflammation [Recovering/Resolving]

NARRATIVE: CASE EVENT DATE: 20221112
